FAERS Safety Report 6203086-7 (Version None)
Quarter: 2009Q2

REPORT INFORMATION
  Report Type: 
  Country: None (occurrence: None)
  Receive Date: 20090521
  Receipt Date: 20090521
  Transmission Date: 20091009
  Serious: Yes (Other)
  Sender: FDA-Public Use
  Company Number: None

PATIENT
  Age: 43 Year
  Sex: Female
  Weight: 58.9676 kg

DRUGS (2)
  1. CYMBALTA [Suspect]
     Indication: ANXIETY
     Dosage: 1 QD PO
     Route: 048
     Dates: start: 20050516, end: 20090514
  2. CYMBALTA [Suspect]
     Indication: HEADACHE
     Dosage: 1 QD PO
     Route: 048
     Dates: start: 20050516, end: 20090514

REACTIONS (1)
  - DRUG WITHDRAWAL SYNDROME [None]
